FAERS Safety Report 14154182 (Version 1)
Quarter: 2017Q4

REPORT INFORMATION
  Report Type: Report from Study
  Country: GB (occurrence: GB)
  Receive Date: 20171102
  Receipt Date: 20171102
  Transmission Date: 20180321
  Serious: Yes (Life-Threatening, Other)
  Sender: FDA-Public Use
  Company Number: PHHY2017GB161010

PATIENT
  Age: 33 Year
  Sex: Male

DRUGS (1)
  1. COSENTYX [Suspect]
     Active Substance: SECUKINUMAB
     Indication: PSORIASIS
     Dosage: 300 MG, QMO
     Route: 058
     Dates: start: 20170909

REACTIONS (4)
  - Suicidal ideation [Unknown]
  - Inappropriate schedule of drug administration [Unknown]
  - Anger [Unknown]
  - Psoriasis [Unknown]

NARRATIVE: CASE EVENT DATE: 20170909
